FAERS Safety Report 14623072 (Version 1)
Quarter: 2018Q1

REPORT INFORMATION
  Report Type: Spontaneous
  Country: CA (occurrence: CA)
  Receive Date: 20180311
  Receipt Date: 20180311
  Transmission Date: 20180509
  Serious: Yes (Death, Hospitalization, Other)
  Sender: FDA-Public Use
  Company Number: PHHY2018CA037117

PATIENT
  Age: 74 Year
  Sex: Female

DRUGS (1)
  1. HYDROXYCHLOROQUINE [Suspect]
     Active Substance: HYDROXYCHLOROQUINE
     Indication: SYSTEMIC LUPUS ERYTHEMATOSUS
     Dosage: UNK
     Route: 065

REACTIONS (8)
  - Atrioventricular block first degree [Unknown]
  - Dilatation atrial [Unknown]
  - Septic shock [Unknown]
  - Cardiac failure [Fatal]
  - Left ventricular hypertrophy [Unknown]
  - Right ventricular hypertrophy [Unknown]
  - Cardiomyopathy [Unknown]
  - Atrial flutter [Unknown]
